FAERS Safety Report 8012867-9 (Version None)
Quarter: 2011Q4

REPORT INFORMATION
  Report Type: 
  Country: None (occurrence: None)
  Receive Date: 20111229
  Receipt Date: 20111221
  Transmission Date: 20120403
  Serious: Yes (Other)
  Sender: FDA-Public Use
  Company Number: DE-B.I. PHARMACEUTICALS,INC./RIDGEFIELD-2011-DE-06877DE

PATIENT
  Age: 79 Year
  Sex: Male
  Weight: 100 kg

DRUGS (6)
  1. SPIRONOLACTONE [Concomitant]
  2. ATACAND [Concomitant]
  3. PRADAXA [Suspect]
     Indication: HAEMORRHAGE
  4. EZETIMIBE [Concomitant]
  5. PRADAXA [Suspect]
     Indication: ATRIAL FIBRILLATION
     Dosage: 220 MG
     Route: 048
     Dates: start: 20111026, end: 20111104
  6. ASPIRIN [Concomitant]
     Indication: CORONARY ARTERY DISEASE
     Dosage: 100 NR
     Route: 048

REACTIONS (2)
  - CEREBROVASCULAR ACCIDENT [None]
  - GLOMERULAR FILTRATION RATE DECREASED [None]
